FAERS Safety Report 18412215 (Version 1)
Quarter: 2020Q4

REPORT INFORMATION
  Report Type: Spontaneous
  Country: BR (occurrence: BR)
  Receive Date: 20201021
  Receipt Date: 20201021
  Transmission Date: 20210114
  Serious: Yes (Hospitalization)
  Sender: FDA-Public Use
  Company Number: NVSC2020BR274822

PATIENT
  Age: 56 Year
  Sex: Male

DRUGS (3)
  1. OCTREOTIDE. [Suspect]
     Active Substance: OCTREOTIDE
     Indication: VIPOMA
     Dosage: 0.1 MG, Q8H
     Route: 058
     Dates: start: 20170904, end: 20170913
  2. OCTREOTIDE. [Suspect]
     Active Substance: OCTREOTIDE
  3. OCTREOTIDE. [Suspect]
     Active Substance: OCTREOTIDE
     Dosage: 0.1 MG, Q8H
     Route: 058
     Dates: start: 20170918, end: 20171005

REACTIONS (5)
  - Hypercalcaemia [Unknown]
  - Diarrhoea [Unknown]
  - Acute kidney injury [Unknown]
  - Metabolic acidosis [Unknown]
  - Hypokalaemia [Unknown]
